FAERS Safety Report 5923024-1 (Version None)
Quarter: 2008Q4

REPORT INFORMATION
  Report Type: 
  Country: None (occurrence: None)
  Receive Date: 20081018
  Receipt Date: 20081007
  Transmission Date: 20090506
  Serious: Yes (Other)
  Sender: FDA-Public Use
  Company Number: US-PFIZER INC-2008079615

PATIENT
  Sex: Female

DRUGS (15)
  1. LYRICA [Suspect]
     Indication: NEURALGIA
     Route: 048
     Dates: start: 20080724, end: 20080903
  2. LYRICA [Suspect]
     Indication: FIBROMYALGIA
  3. LYRICA [Suspect]
     Indication: COMPLEX REGIONAL PAIN SYNDROME
  4. CYMBALTA [Concomitant]
     Indication: NEURALGIA
  5. NEURONTIN [Concomitant]
  6. ULTRAM ER [Concomitant]
  7. LORTAB [Concomitant]
  8. ZANAFLEX [Concomitant]
  9. MOBIC [Concomitant]
  10. TRAVATAN [Concomitant]
  11. AMARYL [Concomitant]
  12. METFORMIN HYDROCHLORIDE/SITAGLIPTIN [Concomitant]
  13. METHIMAZOLE [Concomitant]
     Indication: HYPERTHYROIDISM
  14. PREVACID [Concomitant]
  15. LUNESTA [Concomitant]

REACTIONS (9)
  - ACTIVITIES OF DAILY LIVING IMPAIRED [None]
  - DIZZINESS [None]
  - DYSURIA [None]
  - EYE HAEMORRHAGE [None]
  - HEADACHE [None]
  - RETINOPATHY [None]
  - URINARY RETENTION [None]
  - VISION BLURRED [None]
  - VISUAL ACUITY REDUCED [None]
